FAERS Safety Report 12403179 (Version 2)
Quarter: 2016Q2

REPORT INFORMATION
  Report Type: Spontaneous
  Country: FR (occurrence: FR)
  Receive Date: 20160525
  Receipt Date: 20160606
  Transmission Date: 20160815
  Serious: Yes (Other)
  Sender: FDA-Public Use
  Company Number: FR-ALLERGAN-1657632US

PATIENT
  Age: 64 Year
  Sex: Male

DRUGS (1)
  1. URSODEOXYCHOLIC ACID UNK [Suspect]
     Active Substance: URSODIOL
     Indication: BILIARY CIRRHOSIS PRIMARY
     Route: 065

REACTIONS (5)
  - Blood bilirubin increased [Recovered/Resolved]
  - Blood alkaline phosphatase increased [Unknown]
  - Ascites [Unknown]
  - Alanine aminotransferase increased [Unknown]
  - Portal hypertension [Unknown]
